FAERS Safety Report 8809608 (Version 2)
Quarter: 2012Q4

REPORT INFORMATION
  Report Type: 
  Country: US (occurrence: US)
  Receive Date: 20120926
  Receipt Date: 20121030
  Transmission Date: 20130627
  Serious: Yes (Other)
  Sender: FDA-Public Use
  Company Number: US-B.I. PHARMACEUTICALS,INC./RIDGEFIELD-2012-BP-23158BP

PATIENT
  Sex: Male
  Weight: 89 kg

DRUGS (12)
  1. SPIRIVA [Suspect]
     Indication: LUNG DISORDER
     Dosage: 18 mcg
     Route: 055
     Dates: start: 2009
  2. SPIRIVA [Suspect]
     Indication: EMPHYSEMA
  3. BUMETANIDE [Concomitant]
     Indication: FLUID RETENTION
     Dosage: 8 mg
     Route: 048
     Dates: start: 2007
  4. BUMETANIDE [Concomitant]
     Indication: OEDEMA
  5. COLCHICINE [Concomitant]
     Indication: GOUT
     Route: 048
  6. COREG [Concomitant]
     Indication: CARDIAC DISORDER
     Dosage: 25 mg
     Route: 048
     Dates: start: 201110
  7. ENALAPRIL [Concomitant]
     Indication: CARDIAC DISORDER
     Dosage: 30 mg
     Route: 048
     Dates: start: 2002
  8. ASPIRIN [Concomitant]
     Indication: ANTICOAGULANT THERAPY
     Dosage: 81 mg
     Route: 048
     Dates: start: 1997
  9. ASPIRIN [Concomitant]
     Indication: CARDIAC DISORDER
  10. PRAVASTATIN  SODIUM [Concomitant]
     Indication: BLOOD CHOLESTEROL INCREASED
     Dosage: 80 mg
     Route: 048
     Dates: start: 1992
  11. RANEXA [Concomitant]
     Indication: ANGINA PECTORIS
     Dosage: 1000 mg
     Route: 048
  12. PROBENECID [Concomitant]
     Indication: GOUT
     Route: 048
     Dates: start: 2009

REACTIONS (2)
  - Cardiac failure congestive [Not Recovered/Not Resolved]
  - Blood glucose increased [Not Recovered/Not Resolved]
